FAERS Safety Report 9712605 (Version 2)
Quarter: 2014Q2

REPORT INFORMATION
  Report Type: Spontaneous
  Country: US (occurrence: US)
  Receive Date: 20131126
  Receipt Date: 20140510
  Transmission Date: 20141212
  Serious: Yes (Other)
  Sender: FDA-Public Use
  Company Number: US-BRISTOL-MYERS SQUIBB COMPANY-19203009

PATIENT
  Age: 49 Year
  Sex: Female
  Weight: 113.38 kg

DRUGS (8)
  1. BYDUREON [Suspect]
     Indication: TYPE 2 DIABETES MELLITUS
     Route: 058
     Dates: start: 20130730, end: 20130819
  2. METFORMIN [Concomitant]
     Route: 048
  3. AMARYL [Concomitant]
     Route: 048
  4. LISINOPRIL + HCTZ [Concomitant]
     Dosage: 1DF:20/12.5MG
  5. SYNTHROID [Concomitant]
  6. OSCAL D [Concomitant]
     Dosage: 1DF:500 UNITS NOS
  7. ACETYLSALICYLIC ACID [Concomitant]
  8. BIOTIN [Concomitant]

REACTIONS (2)
  - Urticaria [Recovered/Resolved]
  - Pruritus [Unknown]
